FAERS Safety Report 7746245-4 (Version None)
Quarter: 2011Q3

REPORT INFORMATION
  Report Type: 
  Country: None (occurrence: None)
  Receive Date: 20110825
  Receipt Date: 20110725
  Transmission Date: 20111222
  Serious: No
  Sender: FDA-Public Use
  Company Number: 329333

PATIENT
  Sex: Female

DRUGS (2)
  1. VICTOZA [Suspect]
     Indication: TYPE 2 DIABETES MELLITUS
     Dosage: 0.6 MG, QD, SUBCUTANEOUS
     Route: 058
     Dates: start: 20110511, end: 20110519
  2. AMARYL [Concomitant]

REACTIONS (8)
  - CONSTIPATION [None]
  - ABDOMINAL PAIN UPPER [None]
  - FATIGUE [None]
  - DYSPNOEA [None]
  - ASTHENIA [None]
  - BLOOD GLUCOSE INCREASED [None]
  - BACK PAIN [None]
  - GAIT DISTURBANCE [None]
